FAERS Safety Report 5310757-3 (Version None)
Quarter: 2007Q2

REPORT INFORMATION
  Report Type: 
  Country: None (occurrence: None)
  Receive Date: 20070428
  Receipt Date: 20070418
  Transmission Date: 20071010
  Serious: Yes (Life-Threatening, Hospitalization, Other)
  Sender: FDA-Public Use
  Company Number: JP-PFIZER INC-2007027185

PATIENT
  Sex: Female
  Weight: 47.9 kg

DRUGS (5)
  1. PHARMORUBICIN [Suspect]
     Indication: BREAST CANCER
     Route: 042
     Dates: start: 20061205, end: 20070209
  2. ENDOXAN [Suspect]
     Indication: BREAST CANCER
     Route: 042
     Dates: start: 20061205, end: 20070209
  3. NASEA [Concomitant]
     Route: 042
     Dates: start: 20061205, end: 20070209
  4. DECADRON [Concomitant]
     Route: 042
     Dates: start: 20061205, end: 20070209
  5. RINDERON [Concomitant]
     Route: 048
     Dates: start: 20061206, end: 20070214

REACTIONS (1)
  - INTERSTITIAL LUNG DISEASE [None]
